FAERS Safety Report 6477645-0 (Version None)
Quarter: 2009Q4

REPORT INFORMATION
  Report Type: 
  Country: None (occurrence: None)
  Receive Date: 20091207
  Receipt Date: 20091104
  Transmission Date: 20100525
  Serious: No
  Sender: FDA-Public Use
  Company Number: US-BAYER-200939663NA

PATIENT
  Age: 56 Year
  Sex: Male
  Weight: 70 kg

DRUGS (4)
  1. ULTRAVIST 370 [Suspect]
     Indication: COMPUTERISED TOMOGRAM ABDOMEN
     Dosage: TOTAL DAILY DOSE: 80 ML  UNIT DOSE: 500 ML
     Route: 042
     Dates: start: 20091104, end: 20091104
  2. ULTRAVIST 370 [Suspect]
     Route: 048
     Dates: start: 20091104, end: 20091104
  3. TRAMADOL HCL [Concomitant]
  4. DIAZEPAM [Concomitant]

REACTIONS (1)
  - ERYTHEMA [None]
